FAERS Safety Report 4518364-7 (Version None)
Quarter: 2004Q4

REPORT INFORMATION
  Report Type: 
  Country: None (occurrence: None)
  Receive Date: 20041202
  Receipt Date: 20041119
  Transmission Date: 20050328
  Serious: No
  Sender: FDA-Public Use
  Company Number: TAP2004Q01510

PATIENT
  Sex: Female

DRUGS (3)
  1. PREVACID [Suspect]
  2. HYDROCODONE (HYDROCODONE) [Suspect]
     Indication: NERVOUS SYSTEM DISORDER
  3. REGLAN [Suspect]

REACTIONS (1)
  - VISION BLURRED [None]
